FAERS Safety Report 8831068 (Version 2)
Quarter: 2013Q1

REPORT INFORMATION
  Report Type: Spontaneous
  Country: US (occurrence: US)
  Receive Date: 20121008
  Receipt Date: 20130128
  Transmission Date: 20140127
  Serious: No
  Sender: FDA-Public Use
  Company Number: US-TEVA-362096USA

PATIENT
  Age: 63 Year
  Sex: Female

DRUGS (6)
  1. COPAXONE [Suspect]
     Indication: MULTIPLE SCLEROSIS
     Dates: start: 20120925
  2. FENTANYL [Concomitant]
     Dosage: 75 MCG/HOUR
  3. NEURONTIN [Concomitant]
     Dosage: 2400 MILLIGRAM DAILY;
  4. DEMEROL [Concomitant]
     Indication: BREAKTHROUGH PAIN
  5. PROMETHAZINE [Concomitant]
  6. REGLAN [Concomitant]
     Dosage: BEFORE MEALS AND AT BEDTIME

REACTIONS (7)
  - Injection site haemorrhage [Recovered/Resolved]
  - Paraesthesia [Unknown]
  - Incoherent [Unknown]
  - Flushing [Recovered/Resolved]
  - Chest pain [Recovered/Resolved]
  - Anxiety [Recovered/Resolved]
  - Palpitations [Recovered/Resolved]
